FAERS Safety Report 9359740 (Version 2)
Quarter: 2014Q2

REPORT INFORMATION
  Report Type: Spontaneous
  Country: IT (occurrence: IT)
  Receive Date: 20130621
  Receipt Date: 20140417
  Transmission Date: 20141212
  Serious: Yes (Disabling)
  Sender: FDA-Public Use
  Company Number: IT-ROCHE-1239422

PATIENT
  Age: 45 Year
  Sex: Female

DRUGS (7)
  1. AVASTIN [Suspect]
     Indication: BREAST CANCER METASTATIC
     Route: 042
     Dates: start: 20120416, end: 20130515
  2. ZOMETA [Suspect]
     Indication: BREAST CANCER METASTATIC
     Route: 042
     Dates: start: 20120522, end: 20130415
  3. PACLITAXEL [Concomitant]
     Route: 065
     Dates: start: 20120406
  4. CARBOPLATIN [Concomitant]
     Route: 065
     Dates: start: 20121011
  5. LANSOPRAZOLE [Concomitant]
     Route: 065
     Dates: start: 20120401
  6. LYRICA [Concomitant]
  7. LASIX [Concomitant]
     Route: 065
     Dates: start: 20121204

REACTIONS (1)
  - Osteonecrosis [Unknown]
